FAERS Safety Report 24301179 (Version 3)
Quarter: 2025Q1

REPORT INFORMATION
  Report Type: Report from Study
  Country: GB (occurrence: GB)
  Receive Date: 20240910
  Receipt Date: 20250311
  Transmission Date: 20250408
  Serious: Yes (Hospitalization, Other)
  Sender: NOVARTIS
  Company Number: GB-002147023-NVSC2022GB202650

PATIENT
  Age: 45 Year
  Sex: Female

DRUGS (4)
  1. COSENTYX [Suspect]
     Active Substance: SECUKINUMAB
     Indication: Psoriatic arthropathy
     Dosage: 150 MG, QMO
     Route: 058
     Dates: start: 202104
  2. COSENTYX [Suspect]
     Active Substance: SECUKINUMAB
     Dosage: 300 MG, QMO
     Route: 065
  3. COSENTYX [Suspect]
     Active Substance: SECUKINUMAB
     Route: 065
  4. COSENTYX [Suspect]
     Active Substance: SECUKINUMAB
     Dosage: 150 MG, QMO
     Route: 065

REACTIONS (22)
  - Oxygen saturation decreased [Unknown]
  - Wheezing [Recovered/Resolved]
  - Dyspnoea [Recovered/Resolved]
  - Productive cough [Recovered/Resolved]
  - Lower respiratory tract infection [Recovering/Resolving]
  - Psoriatic arthropathy [Recovering/Resolving]
  - Productive cough [Not Recovered/Not Resolved]
  - Gastrointestinal haemorrhage [Unknown]
  - Fatigue [Not Recovered/Not Resolved]
  - Stress [Not Recovered/Not Resolved]
  - Infection [Not Recovered/Not Resolved]
  - Eye infection [Recovered/Resolved]
  - Urinary tract infection [Recovered/Resolved]
  - Rhinitis [Not Recovered/Not Resolved]
  - Tinea pedis [Not Recovered/Not Resolved]
  - Nasopharyngitis [Not Recovered/Not Resolved]
  - Cough [Not Recovered/Not Resolved]
  - Musculoskeletal stiffness [Not Recovered/Not Resolved]
  - Pain [Not Recovered/Not Resolved]
  - Dactylitis [Not Recovered/Not Resolved]
  - Muscular weakness [Not Recovered/Not Resolved]
  - Lipids increased [Unknown]

NARRATIVE: CASE EVENT DATE: 20220606
